FAERS Safety Report 17527916 (Version 2)
Quarter: 2020Q1

REPORT INFORMATION
  Report Type: Report from Study
  Country: BR (occurrence: BR)
  Receive Date: 20200311
  Receipt Date: 20200327
  Transmission Date: 20200409
  Serious: Yes (Hospitalization, Other)
  Sender: FDA-Public Use
  Company Number: NVSC2020BR066879

PATIENT
  Age: 50 Year
  Sex: Female
  Weight: 66.4 kg

DRUGS (10)
  1. FUROSEMIDE. [Concomitant]
     Active Substance: FUROSEMIDE
     Indication: DIURETIC THERAPY
     Dosage: 1 DF, QD (PRAT, AS REPORTED))
     Route: 048
     Dates: start: 201803
  2. SPIRONOLACTONE. [Concomitant]
     Active Substance: SPIRONOLACTONE
     Indication: PRODUCT USED FOR UNKNOWN INDICATION
     Dosage: 0.5 DF, Q12H ((CRISTALIA))
     Route: 065
     Dates: start: 201512
  3. OMEPRAZOLE. [Concomitant]
     Active Substance: OMEPRAZOLE
     Indication: PRODUCT USED FOR UNKNOWN INDICATION
     Dosage: 1 DF, QD (HIPOLABOR)
     Route: 048
     Dates: start: 201803
  4. BIPERIDENO [Concomitant]
     Indication: PRODUCT USED FOR UNKNOWN INDICATION
     Dosage: 0.5 DF, Q12H ((CRISTALIA))
     Route: 048
     Dates: start: 201512
  5. ENTRESTO [Suspect]
     Active Substance: SACUBITRIL\VALSARTAN
     Indication: CARDIAC FAILURE
     Dosage: 1 DF, Q12H
     Route: 065
     Dates: start: 201810
  6. CARVEDILOL. [Suspect]
     Active Substance: CARVEDILOL
     Indication: PRODUCT USED FOR UNKNOWN INDICATION
     Route: 065
  7. ATORVASTATIN CALCIUM. [Concomitant]
     Active Substance: ATORVASTATIN CALCIUM
     Indication: BLOOD CHOLESTEROL
     Dosage: 2 DF, QHS ((EMS))
     Route: 048
     Dates: start: 202003
  8. RISPERIDONE. [Suspect]
     Active Substance: RISPERIDONE
     Indication: PRODUCT USED FOR UNKNOWN INDICATION
     Dosage: 1 DF, QHS
     Route: 048
     Dates: start: 201512
  9. BISOPROLOL [Concomitant]
     Active Substance: BISOPROLOL
     Indication: ARRHYTHMIA
     Dosage: 1 DF, QD (EMS)
     Route: 048
     Dates: start: 201803
  10. SERTRALINE [Concomitant]
     Active Substance: SERTRALINE HYDROCHLORIDE
     Indication: PRODUCT USED FOR UNKNOWN INDICATION
     Dosage: 1 DF, QD (NEOQU?MICA)
     Route: 048
     Dates: start: 201909

REACTIONS (27)
  - Malignant peritoneal neoplasm [Recovered/Resolved]
  - Blood pressure decreased [Unknown]
  - Fatigue [Recovering/Resolving]
  - Mental disorder [Not Recovered/Not Resolved]
  - Amnesia [Unknown]
  - Heart rate decreased [Not Recovered/Not Resolved]
  - Dizziness [Not Recovered/Not Resolved]
  - Nausea [Not Recovered/Not Resolved]
  - Memory impairment [Not Recovered/Not Resolved]
  - Panic disorder [Unknown]
  - Pulmonary oedema [Unknown]
  - Schizophrenia [Not Recovered/Not Resolved]
  - Cardiac failure [Unknown]
  - Feeling abnormal [Unknown]
  - Bronchitis [Unknown]
  - Ovarian necrosis [Recovered/Resolved]
  - Aggression [Unknown]
  - Infarction [Unknown]
  - Pulmonary hypertension [Unknown]
  - Weight increased [Unknown]
  - Weight decreased [Recovering/Resolving]
  - Dyspnoea [Recovering/Resolving]
  - Abdominal distension [Unknown]
  - Benign breast neoplasm [Recovered/Resolved]
  - Agitation [Unknown]
  - Gait disturbance [Unknown]
  - Vertigo [Recovering/Resolving]

NARRATIVE: CASE EVENT DATE: 2015
